FAERS Safety Report 24161960 (Version 1)
Quarter: 2024Q3

REPORT INFORMATION
  Report Type: Spontaneous
  Country: None (occurrence: None)
  Receive Date: 20240801
  Receipt Date: 20240801
  Transmission Date: 20241017
  Serious: No
  Sender: TOLMAR
  Company Number: -TOLMAR, INC.-24051060

PATIENT

DRUGS (1)
  1. JATENZO [Suspect]
     Active Substance: TESTOSTERONE UNDECANOATE
     Indication: Product used for unknown indication
     Dosage: UNK
     Dates: start: 202403

REACTIONS (3)
  - Asthenia [Unknown]
  - Fatigue [Unknown]
  - Apathy [Unknown]
